FAERS Safety Report 15257777 (Version 1)
Quarter: 2018Q3

REPORT INFORMATION
  Report Type: Spontaneous
  Country: US (occurrence: US)
  Receive Date: 20180718
  Receipt Date: 20180718
  Transmission Date: 20181010
  Serious: No
  Sender: FDA-Public Use
  Company Number: None

PATIENT
  Age: 78 Year
  Sex: Male

DRUGS (1)
  1. ZYTIGA [Suspect]
     Active Substance: ABIRATERONE ACETATE
     Indication: PROSTATE CANCER
     Route: 048
     Dates: start: 20180712

REACTIONS (6)
  - Muscle spasms [None]
  - Abdominal pain upper [None]
  - Diarrhoea [None]
  - Headache [None]
  - Fatigue [None]
  - Gastrointestinal inflammation [None]
